FAERS Safety Report 4568267-7 (Version None)
Quarter: 2005Q1

REPORT INFORMATION
  Report Type: 
  Country: None (occurrence: None)
  Receive Date: 20050131
  Receipt Date: 20050120
  Transmission Date: 20050727
  Serious: Yes (Hospitalization)
  Sender: FDA-Public Use
  Company Number: 2004CG02407

PATIENT
  Age: 14 Year
  Sex: Male
  Weight: 76.7 kg

DRUGS (3)
  1. OMEPRAZOLE [Suspect]
     Indication: EROSIVE OESOPHAGITIS
     Dosage: 20 MG DAILY PO
     Route: 048
     Dates: start: 20040901, end: 20041125
  2. SEGLOR [Concomitant]
  3. MOTILIUM [Suspect]

REACTIONS (4)
  - ABNORMAL BEHAVIOUR [None]
  - AGITATION [None]
  - HALLUCINATIONS, MIXED [None]
  - INAPPROPRIATE AFFECT [None]
